FAERS Safety Report 5082375-6 (Version None)
Quarter: 2006Q3

REPORT INFORMATION
  Report Type: 
  Country: None (occurrence: None)
  Receive Date: 20060817
  Receipt Date: 20060726
  Transmission Date: 20061208
  Serious: Yes (Hospitalization, Other)
  Sender: FDA-Public Use
  Company Number: TR-AVENTIS-200617801GDDC

PATIENT
  Age: 22 Year
  Sex: Female
  Weight: 58 kg

DRUGS (4)
  1. KETEK [Suspect]
     Indication: UPPER RESPIRATORY TRACT INFECTION
     Dosage: DOSE: UNK
     Route: 048
     Dates: start: 20050810, end: 20050811
  2. NASACORT [Suspect]
     Indication: UPPER RESPIRATORY TRACT INFECTION
     Dosage: DOSE: UNK
     Dates: start: 20050810, end: 20050811
  3. ERDOSTEIN [Concomitant]
     Indication: UPPER RESPIRATORY TRACT INFECTION
     Route: 048
     Dates: start: 20050810, end: 20050811
  4. CABRAL [Concomitant]
     Indication: UPPER RESPIRATORY TRACT INFECTION
     Route: 048
     Dates: start: 20050810, end: 20050811

REACTIONS (1)
  - HEPATITIS TOXIC [None]
